FAERS Safety Report 9422623 (Version 1)
Quarter: 2013Q3

REPORT INFORMATION
  Report Type: Spontaneous
  Country: US (occurrence: US)
  Receive Date: 20130726
  Receipt Date: 20130726
  Transmission Date: 20140515
  Serious: No
  Sender: FDA-Public Use
  Company Number: US-PFIZER INC-2013216473

PATIENT
  Age: 11 Year
  Sex: Male
  Weight: 41.72 kg

DRUGS (1)
  1. CHILDREN^S ADVIL [Suspect]
     Dosage: UNK

REACTIONS (3)
  - Hypersensitivity [Unknown]
  - Cough [Unknown]
  - Lip swelling [Unknown]
